FAERS Safety Report 18216711 (Version 1)
Quarter: 2020Q3

REPORT INFORMATION
  Report Type: Other
  Country: CA (occurrence: CA)
  Receive Date: 20200901
  Receipt Date: 20200901
  Transmission Date: 20201103
  Serious: No
  Sender: FDA-Public Use
  Company Number: CA-ROCHE-2669137

PATIENT
  Sex: Female

DRUGS (4)
  1. MODAFINIL. [Concomitant]
     Active Substance: MODAFINIL
     Indication: FATIGUE
  2. OCREVUS [Suspect]
     Active Substance: OCRELIZUMAB
     Indication: RELAPSING-REMITTING MULTIPLE SCLEROSIS
     Dosage: THEN 600 MG EVERY 6 MONTH.
     Route: 042
     Dates: start: 20180927
  3. MODAFINIL. [Concomitant]
     Active Substance: MODAFINIL
     Indication: ASTHENIA
  4. RIZATRIPTAN. [Concomitant]
     Active Substance: RIZATRIPTAN
     Indication: MIGRAINE

REACTIONS (3)
  - Oral candidiasis [Not Recovered/Not Resolved]
  - Bladder spasm [Not Recovered/Not Resolved]
  - Vulvovaginal mycotic infection [Not Recovered/Not Resolved]
